FAERS Safety Report 6247574-6 (Version None)
Quarter: 2009Q2

REPORT INFORMATION
  Report Type: 
  Country: None (occurrence: None)
  Receive Date: 20090626
  Receipt Date: 20090619
  Transmission Date: 20091009
  Serious: Yes (Disabling, Other)
  Sender: FDA-Public Use
  Company Number: US-MERCK-0811USA02807

PATIENT
  Age: 85 Year
  Sex: Female

DRUGS (3)
  1. FOSAMAX [Suspect]
     Indication: OSTEOPOROSIS
     Route: 048
     Dates: start: 20030701, end: 20060101
  2. FOSAMAX PLUS D [Concomitant]
     Route: 048
  3. CALTRATE + D [Concomitant]
     Indication: OSTEOPOROSIS
     Route: 065
     Dates: start: 20030601

REACTIONS (11)
  - ACETABULUM FRACTURE [None]
  - EPISTAXIS [None]
  - EXOSTOSIS [None]
  - FALL [None]
  - HAEMOPTYSIS [None]
  - JAW DISORDER [None]
  - OSTEOMYELITIS [None]
  - OSTEONECROSIS [None]
  - PALPITATIONS [None]
  - TOOTH FRACTURE [None]
  - TOOTH LOSS [None]
